FAERS Safety Report 4802594-0 (Version None)
Quarter: 2005Q4

REPORT INFORMATION
  Report Type: 
  Country: None (occurrence: None)
  Receive Date: 20051014
  Receipt Date: 20050304
  Transmission Date: 20060501
  Serious: Yes (Other)
  Sender: FDA-Public Use
  Company Number: 2005036965

PATIENT
  Sex: Male

DRUGS (5)
  1. NEURONTIN [Suspect]
     Indication: BACK PAIN
     Dosage: 2400 MG (800 MG, 3 IN 1 D)
     Dates: start: 20000101, end: 20040101
  2. NEURONTIN [Suspect]
     Indication: PAIN
     Dosage: 2400 MG (800 MG, 3 IN 1 D)
     Dates: start: 20000101, end: 20040101
  3. NEFAZODONE HCL [Suspect]
     Indication: DEPRESSION
     Dosage: 450 MG (150 MG, 1 IN AM, 2 AT HS, ORAL
     Route: 048
  4. NICOTINIC ACID [Concomitant]
  5. CLONAZEPAM [Concomitant]

REACTIONS (7)
  - BALANCE DISORDER [None]
  - CHOKING [None]
  - DEPRESSION [None]
  - DIABETES MELLITUS [None]
  - DYSTONIA [None]
  - PARAESTHESIA [None]
  - SOMNOLENCE [None]
